FAERS Safety Report 13339223 (Version 1)
Quarter: 2017Q1

REPORT INFORMATION
  Report Type: Report from Study
  Country: US (occurrence: US)
  Receive Date: 20170315
  Receipt Date: 20170315
  Transmission Date: 20170428
  Serious: Yes (Other)
  Sender: FDA-Public Use
  Company Number: US-009507513-1703USA005211

PATIENT

DRUGS (2)
  1. FALDAPREVIR [Suspect]
     Active Substance: FALDAPREVIR
     Indication: CHRONIC HEPATITIS C
     Dosage: 120 MG, UNK
  2. REBETOL [Suspect]
     Active Substance: RIBAVIRIN
     Indication: CHRONIC HEPATITIS C
     Dosage: TREATMENT FOR 12 WEEKS
     Route: 048

REACTIONS (1)
  - Haemolysis [Recovered/Resolved]
